FAERS Safety Report 7321293-7 (Version None)
Quarter: 2011Q1

REPORT INFORMATION
  Report Type: 
  Country: None (occurrence: None)
  Receive Date: 20110228
  Receipt Date: 20100329
  Transmission Date: 20110831
  Serious: Yes (Other)
  Sender: FDA-Public Use
  Company Number: US-PFIZER INC-2010040477

PATIENT
  Age: 18 Year
  Sex: Female

DRUGS (2)
  1. GEODON [Suspect]
     Dosage: 160 MG, UNK
  2. WELLBUTRIN [Suspect]

REACTIONS (1)
  - TARDIVE DYSKINESIA [None]
